FAERS Safety Report 22239406 (Version 2)
Quarter: 2023Q4

REPORT INFORMATION
  Report Type: Spontaneous
  Country: CA (occurrence: CA)
  Receive Date: 20230421
  Receipt Date: 20231130
  Transmission Date: 20240110
  Serious: Yes (Life-Threatening, Hospitalization, Other)
  Sender: FDA-Public Use
  Company Number: CA-ORGANON-O2304CAN002073

PATIENT
  Age: 32 Year
  Sex: Male

DRUGS (28)
  1. MAXALT [Suspect]
     Active Substance: RIZATRIPTAN BENZOATE
     Indication: Migraine
     Dosage: 10 MILLIGRAM;DOSAGE FORM: NOT SPECIFIED
     Route: 065
  2. MAXALT [Suspect]
     Active Substance: RIZATRIPTAN BENZOATE
     Indication: Attention deficit hyperactivity disorder
     Dosage: 10 MILLIGRAM
     Route: 065
  3. MAXALT [Suspect]
     Active Substance: RIZATRIPTAN BENZOATE
     Dosage: UNK
     Route: 065
  4. METHYLPHENIDATE HYDROCHLORIDE [Suspect]
     Active Substance: METHYLPHENIDATE HYDROCHLORIDE
     Indication: Attention deficit hyperactivity disorder
     Dosage: 30 MILLIGRAM, 2 EVERY 1 DAY
     Route: 065
  5. METHYLPHENIDATE HYDROCHLORIDE [Suspect]
     Active Substance: METHYLPHENIDATE HYDROCHLORIDE
     Indication: Migraine
     Dosage: UNK
     Route: 065
  6. METHYLPHENIDATE HYDROCHLORIDE [Suspect]
     Active Substance: METHYLPHENIDATE HYDROCHLORIDE
     Dosage: 60 MILLIGRAM, 1 EVERY 1 DAYS
     Route: 065
  7. SULFAMETHOXAZOLE\TRIMETHOPRIM [Suspect]
     Active Substance: SULFAMETHOXAZOLE\TRIMETHOPRIM
     Indication: Groin abscess
     Dosage: UNK; DOSAGE FORM: NOT SPECIFIED
     Route: 048
  8. SULFAMETHOXAZOLE\TRIMETHOPRIM [Suspect]
     Active Substance: SULFAMETHOXAZOLE\TRIMETHOPRIM
     Indication: Cellulitis
     Dosage: UNK
     Route: 065
  9. SULFAMETHOXAZOLE\TRIMETHOPRIM [Suspect]
     Active Substance: SULFAMETHOXAZOLE\TRIMETHOPRIM
     Dosage: UNK
     Route: 048
  10. VANCOMYCIN [Suspect]
     Active Substance: VANCOMYCIN
     Indication: Groin abscess
     Dosage: 1.5 GRAM, 1 EVERY 8 HOURS;ROUTE: INTRAVENOUS (NOT OTHERWISE SPECIFIED)
     Route: 042
  11. VANCOMYCIN [Suspect]
     Active Substance: VANCOMYCIN
     Indication: Cellulitis
     Dosage: 2 GRAM; DOSAGE FORM: NOT SPECIFIED, ROUTE: INTRAVENOUS (NOT OTHERWISE SPECIFIED)
     Route: 042
  12. CEFTRIAXONE SODIUM [Suspect]
     Active Substance: CEFTRIAXONE SODIUM
     Indication: Groin abscess
     Dosage: UNK
     Route: 041
  13. CEFTRIAXONE SODIUM [Suspect]
     Active Substance: CEFTRIAXONE SODIUM
     Indication: Cellulitis
     Dosage: UNK, DOSAGE FORM: NOT SPECIFIED
     Route: 065
  14. DAPTOMYCIN [Suspect]
     Active Substance: DAPTOMYCIN
     Indication: Groin abscess
     Dosage: UNK, DOSAGE FORM: NOT SPECIFIED
     Route: 065
  15. METRONIDAZOLE [Suspect]
     Active Substance: METRONIDAZOLE
     Indication: Groin abscess
     Dosage: UNK, DOSAGE FORM: NOT SPECIFIED
     Route: 048
  16. METRONIDAZOLE [Suspect]
     Active Substance: METRONIDAZOLE
     Indication: Cellulitis
     Dosage: UNK
     Route: 065
  17. VANCOMYCIN HYDROCHLORIDE [Suspect]
     Active Substance: VANCOMYCIN HYDROCHLORIDE
     Indication: Groin abscess
     Dosage: 1.5 GRAM, 1 EVERY 8 HOURS
     Route: 042
  18. VANCOMYCIN HYDROCHLORIDE [Suspect]
     Active Substance: VANCOMYCIN HYDROCHLORIDE
     Indication: Cellulitis
     Dosage: 1.5 GRAM, 1 EVERY 8 HOURS
     Route: 042
  19. VANCOMYCIN HYDROCHLORIDE [Suspect]
     Active Substance: VANCOMYCIN HYDROCHLORIDE
     Dosage: 2 GRAM
     Route: 042
  20. VANCOMYCIN HYDROCHLORIDE [Suspect]
     Active Substance: VANCOMYCIN HYDROCHLORIDE
     Dosage: 4.5 GRAM, 3 EVERY 1 DAYS
     Route: 042
  21. CEFTRIAXONE SODIUM [Concomitant]
     Active Substance: CEFTRIAXONE SODIUM
     Indication: Groin abscess
     Dosage: UNK; ROUTE: INTRAVENOUS (NOT OTHERWISE SPECIFIED)
     Route: 042
  22. CEFTRIAXONE SODIUM [Concomitant]
     Active Substance: CEFTRIAXONE SODIUM
     Indication: Cellulitis
     Dosage: UNK
     Route: 041
  23. METRONIDAZOLE [Concomitant]
     Active Substance: METRONIDAZOLE
     Indication: Groin abscess
     Dosage: UNK; DOSAGE FORM: NOT SPECIFIED
     Route: 065
  24. METRONIDAZOLE [Concomitant]
     Active Substance: METRONIDAZOLE
     Indication: Cellulitis
     Dosage: UNK; DOSAGE FORM: NOT SPECIFIED
     Route: 048
  25. PIPERACILLIN AND TAZOBACTAM [Concomitant]
     Active Substance: PIPERACILLIN SODIUM\TAZOBACTAM SODIUM
     Indication: Groin abscess
     Dosage: UNK; DOSAGE FORM: NOT SPECIFIED
     Route: 065
  26. PIPERACILLIN AND TAZOBACTAM [Concomitant]
     Active Substance: PIPERACILLIN SODIUM\TAZOBACTAM SODIUM
     Indication: Cellulitis
     Dosage: UNK; DOSAGE FORM: POWDER AND SOLVENT FOR SOLUTION FOR INFUSION
     Route: 041
  27. SULFAMETHOXAZOLE\TRIMETHOPRIM [Concomitant]
     Active Substance: SULFAMETHOXAZOLE\TRIMETHOPRIM
     Indication: Groin abscess
     Dosage: UNK
     Route: 048
  28. AMLODIPINE BESYLATE [Concomitant]
     Active Substance: AMLODIPINE BESYLATE
     Indication: Groin abscess
     Dosage: 5 MILLIGRAM
     Route: 065

REACTIONS (8)
  - Acute myocardial infarction [Recovered/Resolved]
  - Angina pectoris [Recovered/Resolved]
  - Arteriospasm coronary [Recovered/Resolved]
  - Drug hypersensitivity [Recovered/Resolved]
  - Drug ineffective [Recovered/Resolved]
  - Hypersensitivity [Recovered/Resolved]
  - Hypokinesia [Recovered/Resolved]
  - Kounis syndrome [Recovered/Resolved]
